FAERS Safety Report 17936848 (Version 1)
Quarter: 2020Q2

REPORT INFORMATION
  Report Type: Spontaneous
  Country: PR (occurrence: PR)
  Receive Date: 20200624
  Receipt Date: 20200624
  Transmission Date: 20200714
  Serious: No
  Sender: FDA-Public Use
  Company Number: PR-PFIZER INC-2020238919

PATIENT
  Age: 5 Year
  Sex: Female
  Weight: 21.32 kg

DRUGS (1)
  1. GENOTROPIN MQ [Suspect]
     Active Substance: SOMATROPIN
     Indication: PRADER-WILLI SYNDROME
     Dosage: 0.6 MG, 1X/DAY (0.6 MG INJECTED NIGHTLY)

REACTIONS (1)
  - Injection site pain [Unknown]
